FAERS Safety Report 4768759-1 (Version None)
Quarter: 2005Q3

REPORT INFORMATION
  Report Type: 
  Country: None (occurrence: None)
  Receive Date: 20050914
  Receipt Date: 20050831
  Transmission Date: 20060218
  Serious: Yes (Other)
  Sender: FDA-Public Use
  Company Number: US-JNJFOC-20050900877

PATIENT
  Age: 93 Year
  Sex: Male

DRUGS (2)
  1. RAZADYNE ER [Suspect]
     Indication: DEMENTIA
     Dosage: 16MG
  2. REMINYL [Suspect]
     Indication: DEMENTIA
     Dosage: 4- 4MG TABLETS GIVEN
     Route: 048

REACTIONS (3)
  - DRUG ADMINISTRATION ERROR [None]
  - INCORRECT DOSE ADMINISTERED [None]
  - NO ADVERSE DRUG EFFECT [None]
